FAERS Safety Report 25095642 (Version 1)
Quarter: 2025Q1

REPORT INFORMATION
  Report Type: Spontaneous
  Country: US (occurrence: US)
  Receive Date: 20250319
  Receipt Date: 20250319
  Transmission Date: 20250409
  Serious: No
  Sender: MERZ
  Company Number: US-ACORDA-ACO_177566_2024

PATIENT
  Age: 42 Year
  Sex: Female

DRUGS (1)
  1. AMPYRA [Suspect]
     Active Substance: DALFAMPRIDINE
     Indication: Multiple sclerosis
     Dosage: 10 MILLIGRAM, BID
     Route: 065
     Dates: start: 20240711

REACTIONS (6)
  - Head discomfort [Unknown]
  - Eye disorder [Unknown]
  - Fatigue [Unknown]
  - Dizziness [Unknown]
  - Balance disorder [Unknown]
  - Asthenia [Unknown]
